FAERS Safety Report 16260262 (Version 1)
Quarter: 2019Q2

REPORT INFORMATION
  Report Type: Spontaneous
  Country: US (occurrence: US)
  Receive Date: 20190327
  Receipt Date: 20190327
  Transmission Date: 20190711
  Serious: No
  Sender: FDA-Public Use
  Company Number: None

PATIENT
  Sex: Female

DRUGS (1)
  1. ORENCIA [Suspect]
     Active Substance: ABATACEPT
     Dosage: OTHER
     Route: 058
     Dates: start: 201806

REACTIONS (6)
  - Therapy cessation [None]
  - Arthralgia [None]
  - Back pain [None]
  - Musculoskeletal pain [None]
  - Drug ineffective [None]
  - Inflammation [None]
